FAERS Safety Report 17793909 (Version 2)
Quarter: 2020Q2

REPORT INFORMATION
  Report Type: Spontaneous
  Country: FR (occurrence: FR)
  Receive Date: 20200515
  Receipt Date: 20200617
  Transmission Date: 20200714
  Serious: Yes (Other)
  Sender: FDA-Public Use
  Company Number: FR-ANIPHARMA-2020-FR-000137

PATIENT
  Age: 58 Year
  Sex: Male
  Weight: 116 kg

DRUGS (8)
  1. ATACAND [Suspect]
     Active Substance: CANDESARTAN CILEXETIL
     Indication: HYPERTENSION
     Dosage: 1 DF DAILY
     Route: 048
  2. UVEDOSE [Suspect]
     Active Substance: CHOLECALCIFEROL
     Dosage: DOSE OF 1 AMPULE MONTHLY
     Route: 065
  3. TIVICAY [Suspect]
     Active Substance: DOLUTEGRAVIR SODIUM
     Dosage: DOSE TEXT: 1 DOSAGE FORM DAILY
     Route: 065
     Dates: start: 20160503, end: 202001
  4. REPAGLINIDE. [Suspect]
     Active Substance: REPAGLINIDE
     Dosage: 2 DOSAGE FORM THRICE DAILY
     Route: 065
  5. TRESIBA [Suspect]
     Active Substance: INSULIN DEGLUDEC
     Dosage: 160 IU QD
     Route: 065
  6. DELSTRIGO [Suspect]
     Active Substance: DORAVIRINE\LAMIVUDINE\TENOFOVIR DISOPROXIL FUMARATE
     Dosage: 1 TABLET
     Route: 048
     Dates: start: 202001
  7. EDURANT [Suspect]
     Active Substance: RILPIVIRINE HYDROCHLORIDE
     Dosage: 1 DOSAGE FORM DAILY
     Route: 065
  8. METFORMIN [Suspect]
     Active Substance: METFORMIN HYDROCHLORIDE
     Dosage: 1 DOSAGE FORM THRICE DAILY
     Route: 065
     Dates: start: 202001

REACTIONS (4)
  - Nausea [Unknown]
  - Weight increased [Unknown]
  - Muscle rupture [Unknown]
  - Headache [Unknown]

NARRATIVE: CASE EVENT DATE: 2020
